FAERS Safety Report 25399099 (Version 1)
Quarter: 2025Q2

REPORT INFORMATION
  Report Type: Spontaneous
  Country: US (occurrence: US)
  Receive Date: 20250605
  Receipt Date: 20250605
  Transmission Date: 20250716
  Serious: No
  Sender: TEVA
  Company Number: US-TEVA-VS-3337648

PATIENT
  Age: 29 Year
  Sex: Female

DRUGS (1)
  1. AJOVY [Suspect]
     Active Substance: FREMANEZUMAB-VFRM
     Indication: Product used for unknown indication
     Dosage: 225 MG / 1.5 ML
     Route: 065
     Dates: start: 202501

REACTIONS (3)
  - Injection site pain [Unknown]
  - Device malfunction [Unknown]
  - Incorrect dose administered by device [Unknown]

NARRATIVE: CASE EVENT DATE: 20250528
